FAERS Safety Report 19586890 (Version 4)
Quarter: 2021Q3

REPORT INFORMATION
  Report Type: Report from Study
  Country: None (occurrence: FR)
  Receive Date: 20210720
  Receipt Date: 20210810
  Transmission Date: 20211014
  Serious: Yes (Other)
  Sender: FDA-Public Use
  Company Number: FR-ABBVIE-19K-056-2976349-00

PATIENT
  Age: 63 Year
  Sex: Male

DRUGS (8)
  1. DUODOPA [Suspect]
     Active Substance: CARBIDOPA\LEVODOPA
     Dosage: MORNING DOSE: 6 ML, CONTINUOUS FLOW RATE 7 AM TO 11 PM: 6 ML/H, EXTRA DOSE: 3 ML.
     Route: 050
  2. DUODOPA [Suspect]
     Active Substance: CARBIDOPA\LEVODOPA
     Dosage: CONTINUOUS FLOW RATE DURING THE DAY: 5.3 ML/H
     Route: 050
  3. DUODOPA [Suspect]
     Active Substance: CARBIDOPA\LEVODOPA
     Indication: PARKINSON^S DISEASE
     Route: 050
     Dates: start: 201907
  4. MELATONIN [Concomitant]
     Active Substance: MELATONIN
     Indication: PRODUCT USED FOR UNKNOWN INDICATION
     Route: 065
     Dates: start: 2020, end: 2020
  5. SINEMET LP [Concomitant]
     Active Substance: CARBIDOPA\LEVODOPA
     Indication: MIDDLE INSOMNIA
     Dosage: 100MG/10MG
  6. MELATONIN [Concomitant]
     Active Substance: MELATONIN
     Dosage: DOSAGE INCREASED
     Route: 065
     Dates: start: 2021
  7. DUODOPA [Suspect]
     Active Substance: CARBIDOPA\LEVODOPA
     Dosage: CONTINUOUS FLOW RATE DURING THE DAY: 6 ML/H
     Route: 050
  8. EUPHYTOSE [Concomitant]
     Active Substance: HERBALS
     Indication: PRODUCT USED FOR UNKNOWN INDICATION
     Dosage: AT NIGHT

REACTIONS (43)
  - Cognitive disorder [Unknown]
  - Back pain [Recovered/Resolved]
  - Somnolence [Not Recovered/Not Resolved]
  - Insomnia [Not Recovered/Not Resolved]
  - Speech disorder [Unknown]
  - Confusional state [Unknown]
  - Insomnia [Unknown]
  - Somnolence [Recovering/Resolving]
  - Arthralgia [Unknown]
  - Memory impairment [Unknown]
  - Hypothyroidism [Unknown]
  - Hallucination [Recovered/Resolved]
  - Cerebrovascular accident [Unknown]
  - Balance disorder [Not Recovered/Not Resolved]
  - Fatigue [Unknown]
  - Middle insomnia [Unknown]
  - Freezing phenomenon [Unknown]
  - Disturbance in attention [Unknown]
  - Pollakiuria [Unknown]
  - Disorientation [Unknown]
  - Sleep apnoea syndrome [Unknown]
  - Urinary incontinence [Unknown]
  - Memory impairment [Unknown]
  - Sleep disorder [Unknown]
  - Insomnia [Recovered/Resolved]
  - Mobility decreased [Unknown]
  - Apathy [Unknown]
  - Agitation [Unknown]
  - Speech disorder [Unknown]
  - Movement disorder [Unknown]
  - Device issue [Unknown]
  - Stoma site discharge [Unknown]
  - Somnolence [Recovered/Resolved]
  - Drug intolerance [Unknown]
  - Insomnia [Recovered/Resolved]
  - Balance disorder [Unknown]
  - Osteoarthritis [Unknown]
  - Fall [Unknown]
  - Nightmare [Unknown]
  - Bradykinesia [Recovered/Resolved]
  - Insomnia [Unknown]
  - Restlessness [Not Recovered/Not Resolved]
  - Blood glucose increased [Unknown]

NARRATIVE: CASE EVENT DATE: 2019
